FAERS Safety Report 10313906 (Version 1)
Quarter: 2014Q3

REPORT INFORMATION
  Report Type: Spontaneous
  Country: GB (occurrence: GB)
  Receive Date: 20140718
  Receipt Date: 20140718
  Transmission Date: 20150326
  Serious: Yes (Other)
  Sender: FDA-Public Use
  Company Number: PHHY2014GB086891

PATIENT
  Age: 48 Year
  Sex: Male

DRUGS (2)
  1. METRONIDAZOLE. [Suspect]
     Active Substance: METRONIDAZOLE
     Indication: SEPSIS
     Route: 042
  2. AMPHOTERICIN [Suspect]
     Active Substance: AMPHOTERICIN B
     Indication: SEPSIS
     Route: 042

REACTIONS (3)
  - Oral mucosal exfoliation [Recovered/Resolved]
  - Skin reaction [Recovered/Resolved]
  - Skin exfoliation [Recovered/Resolved]
